FAERS Safety Report 17868686 (Version 1)
Quarter: 2020Q2

REPORT INFORMATION
  Report Type: Spontaneous
  Country: US (occurrence: US)
  Receive Date: 20200605
  Receipt Date: 20200605
  Transmission Date: 20200714
  Serious: Yes (Life-Threatening)
  Sender: FDA-Public Use
  Company Number: None

PATIENT
  Age: 39 Year
  Sex: Male
  Weight: 208.2 kg

DRUGS (19)
  1. CEFEPIME [Concomitant]
     Active Substance: CEFEPIME HYDROCHLORIDE
  2. HYDROCORTISONE SODIUM SUCCINATE [Concomitant]
     Active Substance: HYDROCORTISONE SODIUM SUCCINATE
  3. REMDESIVIR. [Suspect]
     Active Substance: REMDESIVIR
     Indication: COVID-19
     Dates: start: 20200604
  4. ACETAMINOPHEN. [Concomitant]
     Active Substance: ACETAMINOPHEN
  5. PROPOFOL. [Concomitant]
     Active Substance: PROPOFOL
  6. HEPARIN [Concomitant]
     Active Substance: HEPARIN SODIUM
  7. HYDROMORPHONE [Concomitant]
     Active Substance: HYDROMORPHONE
  8. PERFLUTREN LIPID MICROSPHERES [Concomitant]
     Active Substance: PERFLUTREN
  9. VASOPRESSIN. [Concomitant]
     Active Substance: VASOPRESSIN
  10. ACETYLCYSTEINE. [Concomitant]
     Active Substance: ACETYLCYSTEINE
  11. FAMOTIDINE. [Concomitant]
     Active Substance: FAMOTIDINE
  12. ALBUTEROL. [Concomitant]
     Active Substance: ALBUTEROL
  13. AZITHROMYCIN ANHYDROUS. [Concomitant]
     Active Substance: AZITHROMYCIN ANHYDROUS
  14. CHLORHEXIDINE [Concomitant]
     Active Substance: CHLORHEXIDINE
  15. NOREPINEPHRINE. [Concomitant]
     Active Substance: NOREPINEPHRINE
  16. MIDAZOLAM. [Concomitant]
     Active Substance: MIDAZOLAM
  17. IPRATROPIUM-ALBUTEROL [Concomitant]
     Active Substance: ALBUTEROL\IPRATROPIUM
  18. INSULIN REGULAR [Concomitant]
     Active Substance: INSULIN NOS
  19. BISACODYL. [Concomitant]
     Active Substance: BISACODYL

REACTIONS (1)
  - Cardiac arrest [None]

NARRATIVE: CASE EVENT DATE: 20200605
